FAERS Safety Report 13473634 (Version 1)
Quarter: 2017Q2

REPORT INFORMATION
  Report Type: Spontaneous
  Country: BR (occurrence: BR)
  Receive Date: 20170424
  Receipt Date: 20170424
  Transmission Date: 20170830
  Serious: Yes (Life-Threatening)
  Sender: FDA-Public Use
  Company Number: BR-SA-2017SA047289

PATIENT
  Age: 38 Year
  Sex: Male
  Weight: 63 kg

DRUGS (10)
  1. HYDROCORTISONE. [Concomitant]
     Active Substance: HYDROCORTISONE
     Indication: ANTIALLERGIC THERAPY
     Route: 042
     Dates: start: 20170311, end: 20170315
  2. METAMIZOLE SODIUM [Concomitant]
     Active Substance: METAMIZOLE SODIUM
     Indication: ANALGESIC THERAPY
     Route: 042
     Dates: start: 20170315
  3. THYMOGLOBULINE [Suspect]
     Active Substance: LAPINE T-LYMPHOCYTE IMMUNE GLOBULIN
     Indication: IMMUNOSUPPRESSION
     Route: 042
     Dates: start: 20170315, end: 20170315
  4. METAMIZOLE SODIUM [Concomitant]
     Active Substance: METAMIZOLE SODIUM
     Indication: ANALGESIC THERAPY
     Route: 042
     Dates: start: 20170311, end: 20170315
  5. HYDROCORTISONE. [Concomitant]
     Active Substance: HYDROCORTISONE
     Indication: ANTIALLERGIC THERAPY
     Route: 042
     Dates: start: 20170315
  6. TACROLIMUS. [Concomitant]
     Active Substance: TACROLIMUS
     Indication: IMMUNOSUPPRESSION
     Route: 048
     Dates: start: 20170315
  7. PREDNISONE. [Concomitant]
     Active Substance: PREDNISONE
     Indication: IMMUNOSUPPRESSION
     Route: 048
     Dates: start: 20170315
  8. AZATHIOPRINE. [Concomitant]
     Active Substance: AZATHIOPRINE
     Indication: IMMUNOSUPPRESSION
     Route: 048
     Dates: start: 20170315
  9. TACROLIMUS. [Concomitant]
     Active Substance: TACROLIMUS
     Indication: IMMUNOSUPPRESSION
     Route: 048
     Dates: start: 20170315
  10. PREDNISONE. [Concomitant]
     Active Substance: PREDNISONE
     Indication: IMMUNOSUPPRESSION
     Route: 048
     Dates: start: 20170315

REACTIONS (1)
  - Chest pain [Recovered/Resolved]

NARRATIVE: CASE EVENT DATE: 20170315
